FAERS Safety Report 4443744-8 (Version None)
Quarter: 2004Q3

REPORT INFORMATION
  Report Type: 
  Country: None (occurrence: None)
  Receive Date: 20040908
  Receipt Date: 20040421
  Transmission Date: 20050211
  Serious: Yes (Death, Other)
  Sender: FDA-Public Use
  Company Number: PHBS2004JP05497

PATIENT
  Age: 59 Year
  Sex: Male
  Weight: 56 kg

DRUGS (10)
  1. NEORAL [Suspect]
     Indication: PYODERMA GANGRENOSUM
     Dosage: 180 MG/D
     Route: 048
     Dates: start: 20030710, end: 20030717
  2. PREDNISOLONE [Concomitant]
     Indication: PYODERMA GANGRENOSUM
     Dosage: 30 MG/D
     Route: 048
     Dates: start: 20030620, end: 20030720
  3. PREDNISOLONE [Concomitant]
     Dosage: 50 MG/D
     Route: 048
  4. PREDNISOLONE [Concomitant]
     Dosage: 20 MG/D
     Route: 048
  5. FOY [Concomitant]
     Indication: PLATELET COUNT DECREASED
     Dosage: 1 G DR PER DAY
     Route: 065
     Dates: start: 20030620, end: 20030702
  6. COLCHICINE [Concomitant]
     Indication: PYODERMA GANGRENOSUM
     Dosage: 2 MG/D
     Route: 048
     Dates: start: 20030625, end: 20030706
  7. GASTER D [Concomitant]
     Indication: PROPHYLAXIS AGAINST GASTROINTESTINAL ULCER
     Dosage: 20 MG/D
     Route: 048
     Dates: start: 20030622, end: 20030710
  8. ZANTAC [Concomitant]
     Indication: PROPHYLAXIS AGAINST GASTROINTESTINAL ULCER
     Dosage: 150 MG/D
     Route: 048
     Dates: start: 20030711, end: 20030717
  9. DALACIN C PHOSPHATE [Concomitant]
     Indication: INFECTION PROPHYLAXIS
     Dosage: 2400 MG DR PER DAY
     Route: 065
     Dates: start: 20030719, end: 20030730
  10. PAZUCROSS [Concomitant]
     Indication: INFECTION PROPHYLAXIS
     Dosage: 1000 MG DR PER DAY
     Route: 065
     Dates: start: 20030719, end: 20030730

REACTIONS (7)
  - CYTOMEGALOVIRUS INFECTION [None]
  - DISEASE PROGRESSION [None]
  - DISSEMINATED INTRAVASCULAR COAGULATION [None]
  - DRUG INEFFECTIVE [None]
  - GENERAL PHYSICAL HEALTH DETERIORATION [None]
  - PYODERMA GANGRENOSUM [None]
  - SEPSIS [None]
